FAERS Safety Report 24050778 (Version 2)
Quarter: 2024Q3

REPORT INFORMATION
  Report Type: Report from Study
  Country: US (occurrence: US)
  Receive Date: 20240704
  Receipt Date: 20240819
  Transmission Date: 20241016
  Serious: Yes (Death, Other)
  Sender: ROCHE
  Company Number: US-ROCHE-10000013280

PATIENT
  Age: 65 Year
  Sex: Female
  Weight: 50.35 kg

DRUGS (2)
  1. ROZLYTREK [Suspect]
     Active Substance: ENTRECTINIB
     Indication: Lung neoplasm malignant
     Route: 050
     Dates: start: 20240524, end: 20240621
  2. ROZLYTREK [Suspect]
     Active Substance: ENTRECTINIB
     Indication: Non-small cell lung cancer
     Route: 050
     Dates: start: 20240625

REACTIONS (2)
  - Death [Fatal]
  - Pneumonia [Unknown]
